FAERS Safety Report 5091132-6 (Version None)
Quarter: 2006Q3

REPORT INFORMATION
  Report Type: 
  Country: None (occurrence: None)
  Receive Date: 20060727
  Receipt Date: 20060405
  Transmission Date: 20061208
  Serious: Yes (Other)
  Sender: FDA-Public Use
  Company Number: 2006047081

PATIENT
  Age: 54 Year
  Sex: Female
  Weight: 56.6996 kg

DRUGS (5)
  1. LYRICA [Suspect]
     Indication: FIBROMYALGIA
     Dosage: 450 MG (225 MG,2 IN 1 D),ORAL
     Route: 048
     Dates: start: 20050901
  2. OXYCONTIN [Concomitant]
  3. KLONOPIN [Concomitant]
  4. AMBIEN [Concomitant]
  5. IBUPROFEN [Concomitant]

REACTIONS (5)
  - DIPLOPIA [None]
  - DRUG INEFFECTIVE [None]
  - MUSCLE CONTRACTIONS INVOLUNTARY [None]
  - TREMOR [None]
  - VISION BLURRED [None]
